FAERS Safety Report 24117809 (Version 1)
Quarter: 2024Q3

REPORT INFORMATION
  Report Type: Spontaneous
  Country: JP (occurrence: JP)
  Receive Date: 20240722
  Receipt Date: 20240722
  Transmission Date: 20241016
  Serious: Yes (Hospitalization, Other)
  Sender: SANOFI AVENTIS
  Company Number: JP-SA-2024SA211454

PATIENT
  Age: 71 Year
  Sex: Female
  Weight: 42.9 kg

DRUGS (3)
  1. OXALIPLATIN [Suspect]
     Active Substance: OXALIPLATIN
     Indication: Gastric cancer stage IV
     Dosage: UNK;INJECTION
     Route: 042
  2. GIMERACIL\OTERACIL\TEGAFUR [Concomitant]
     Active Substance: GIMERACIL\OTERACIL POTASSIUM\TEGAFUR
     Dosage: UNK
  3. NIVOLUMAB [Concomitant]
     Active Substance: NIVOLUMAB
     Dosage: UNK

REACTIONS (2)
  - Malnutrition [Unknown]
  - Enterocolitis [Recovering/Resolving]
